FAERS Safety Report 7604406-9 (Version None)
Quarter: 2011Q2

REPORT INFORMATION
  Report Type: 
  Country: None (occurrence: None)
  Receive Date: 20110630
  Receipt Date: 20110617
  Transmission Date: 20111010
  Serious: Yes (Hospitalization, Disabling)
  Sender: FDA-Public Use
  Company Number: 960781

PATIENT
  Age: 43 Year
  Sex: Female
  Weight: 57 kg

DRUGS (5)
  1. ONDANSETRON [Concomitant]
  2. ACETAMINOPHEN AND CODEINE PHOSPHATE [Concomitant]
  3. (DICLOFENAC) [Concomitant]
  4. DEXAMETHASONE [Concomitant]
  5. DOCETAXEL [Suspect]
     Indication: BREAST CANCER
     Dosage: 100 MG/M 2 MILLIGRAM(S) /SQ. METER, INTRAVENOUS
     Route: 042

REACTIONS (2)
  - MYOSITIS [None]
  - WEIGHT BEARING DIFFICULTY [None]
